FAERS Safety Report 10409691 (Version 3)
Quarter: 2014Q4

REPORT INFORMATION
  Report Type: Spontaneous
  Country: IT (occurrence: IT)
  Receive Date: 20140826
  Receipt Date: 20141220
  Transmission Date: 20150528
  Serious: Yes (Hospitalization)
  Sender: FDA-Public Use
  Company Number: IT-MERCK-1408ITA012839

PATIENT
  Age: 59 Year
  Sex: Female

DRUGS (12)
  1. FEMARA [Suspect]
     Active Substance: LETROZOLE
     Indication: BREAST CANCER
     Dosage: 2.5 MG DAILY
     Route: 048
     Dates: start: 2013, end: 20140727
  2. LOSAPREX 50 MG COMPRESSE RIVESTITE CON FILM [Suspect]
     Active Substance: LOSARTAN POTASSIUM
     Indication: HYPERTENSION
     Dosage: 50 MG DAILY
     Route: 048
     Dates: start: 2009, end: 20140727
  3. DIBASE [Suspect]
     Active Substance: CHOLECALCIFEROL
     Dosage: STRENGTH: 10000 IU/ML / DOSE: 20 GTT, QW (ON WEDNESDAY), STARTED SOME MONTHS AGO
     Route: 048
  4. DELTACORTENE [Suspect]
     Active Substance: PREDNISONE
     Dosage: 50 MG, ONCE
     Route: 048
  5. LOSAPREX 50 MG COMPRESSE RIVESTITE CON FILM [Suspect]
     Active Substance: LOSARTAN POTASSIUM
     Indication: DRUG ABUSE
     Dosage: TOTAL DAILY DOSE: 50 MG, FREQUENCY: TOTAL
     Route: 048
     Dates: start: 20140728, end: 20140728
  6. XANAX [Suspect]
     Active Substance: ALPRAZOLAM
     Indication: ANXIETY
     Dosage: 0.5 MG, UNK
     Route: 048
     Dates: start: 201312
  7. DILATREND [Suspect]
     Active Substance: CARVEDILOL
     Indication: DRUG ABUSE
     Dosage: TOTAL DAILY DOSE: 50MG, FREQUENCY: TOTAL
     Route: 048
     Dates: start: 20140728, end: 20140728
  8. XANAX [Suspect]
     Active Substance: ALPRAZOLAM
     Indication: DRUG ABUSE
     Dosage: TOTAL DAILY DOSE: 1MG, FREQUENCY: TOTAL
     Route: 048
     Dates: start: 20140728, end: 20140728
  9. DIBASE [Suspect]
     Active Substance: CHOLECALCIFEROL
     Dosage: STRENGTH:10000 IU/ML, 20 GTT, ONCE
     Route: 048
     Dates: start: 20140728, end: 20140728
  10. PARACODINA (DIHYDROCODEINE BITARTRATE) [Suspect]
     Active Substance: DIHYDROCODEINE BITARTRATE
     Dosage: 40 DROPS ORAL OF 10.25 MG/ML
     Route: 048
     Dates: start: 20140728, end: 20140728
  11. DILATREND [Suspect]
     Active Substance: CARVEDILOL
     Indication: HYPERTENSION
     Dosage: 25 MG DAILY
     Route: 048
     Dates: start: 2009, end: 20140727
  12. FEMARA [Suspect]
     Active Substance: LETROZOLE
     Indication: DRUG ABUSE
     Dosage: TOTAL DAILY DOSE: 5MG, FREQUENCY: TOTAL
     Route: 048
     Dates: start: 20140728, end: 20140728

REACTIONS (2)
  - Somnolence [Recovered/Resolved]
  - Drug abuse [Recovered/Resolved]

NARRATIVE: CASE EVENT DATE: 20140728
